FAERS Safety Report 6176720-8 (Version None)
Quarter: 2009Q2

REPORT INFORMATION
  Report Type: 
  Country: None (occurrence: None)
  Receive Date: 20090501
  Receipt Date: 20080331
  Transmission Date: 20091009
  Serious: Yes (Other)
  Sender: FDA-Public Use
  Company Number: US-ALEXION-A200700129

PATIENT

DRUGS (17)
  1. SOLIRIS [Suspect]
     Indication: PAROXYSMAL NOCTURNAL HAEMOGLOBINURIA
     Dosage: 600 MG, SINGLE
     Route: 042
     Dates: start: 20070619, end: 20070619
  2. SOLIRIS [Suspect]
     Dosage: 900 MG, SINGLE
     Route: 042
     Dates: start: 20071120, end: 20071120
  3. SOLIRIS [Suspect]
     Dosage: 900 MG, SINGLE
     Route: 042
     Dates: start: 20071204, end: 20071204
  4. SOLIRIS [Suspect]
     Dosage: 900 MG, SINGLE
     Route: 042
     Dates: start: 20071218, end: 20071218
  5. SOLIRIS [Suspect]
     Dosage: 900 MG, SINGLE
     Route: 042
     Dates: start: 20080311, end: 20080311
  6. SOLIRIS [Suspect]
     Dosage: 900 MG, SINGLE
     Route: 042
     Dates: start: 20080325, end: 20080325
  7. FOLIC ACID [Concomitant]
     Indication: PAROXYSMAL NOCTURNAL HAEMOGLOBINURIA
     Route: 048
  8. SOLU-MEDROL [Concomitant]
     Route: 048
  9. LOVENOX [Concomitant]
     Route: 048
  10. LEVOTHYROXINE SODIUM [Concomitant]
     Indication: HYPOTHYROIDISM
     Route: 048
  11. AMITRIPTLINE HYDROCHLORIDE TAB [Concomitant]
     Route: 048
  12. ESTROGEN NOS [Concomitant]
     Dosage: UNK, QD
     Route: 048
  13. TYLENOL W/ CODEINE [Concomitant]
     Dosage: UNK, PRN
     Route: 048
  14. PHENERGAN HCL [Concomitant]
     Dosage: UNK, PRN
     Route: 048
  15. PROTONIX                           /01263201/ [Concomitant]
     Dosage: UNK, QD
     Route: 048
  16. SOLUTIONS FOR PARENTERAL NUTRITION [Concomitant]
     Indication: INTESTINAL ISCHAEMIA
     Dosage: UNK, QD
     Route: 042
     Dates: start: 20070601, end: 20071101
  17. SOLUTIONS FOR PARENTERAL NUTRITION [Concomitant]
     Dosage: UNK, QD
     Route: 042
     Dates: start: 20071206

REACTIONS (5)
  - BLOOD CULTURE POSITIVE [None]
  - CATHETER SITE INFECTION [None]
  - HAEMOLYSIS [None]
  - JAUNDICE [None]
  - LIVER FUNCTION TEST ABNORMAL [None]
